FAERS Safety Report 7786492-9 (Version None)
Quarter: 2011Q3

REPORT INFORMATION
  Report Type: 
  Country: None (occurrence: None)
  Receive Date: 20110929
  Receipt Date: 20110922
  Transmission Date: 20111222
  Serious: Yes (Hospitalization)
  Sender: FDA-Public Use
  Company Number: US-GLAXOSMITHKLINE-A0782970A

PATIENT
  Age: 63 Year
  Sex: Male
  Weight: 100 kg

DRUGS (11)
  1. GLUCOTROL [Concomitant]
  2. CELEBREX [Concomitant]
  3. LIPITOR [Concomitant]
  4. PRILOSEC [Concomitant]
  5. PREVACID [Concomitant]
  6. ALLOPURINOL [Concomitant]
  7. PREDNISONE [Concomitant]
  8. LAMISIL [Concomitant]
  9. AVANDIA [Suspect]
     Indication: DIABETES MELLITUS
     Dosage: 8MG PER DAY
     Route: 048
     Dates: start: 20030212, end: 20070101
  10. AVANDAMET [Suspect]
     Indication: DIABETES MELLITUS
     Route: 048
     Dates: start: 20030301, end: 20030901
  11. GLUCOPHAGE [Concomitant]

REACTIONS (4)
  - CORONARY ARTERY STENOSIS [None]
  - ACUTE MYOCARDIAL INFARCTION [None]
  - ACUTE CORONARY SYNDROME [None]
  - CARDIOMEGALY [None]
